FAERS Safety Report 6907290-1 (Version None)
Quarter: 2010Q3

REPORT INFORMATION
  Report Type: 
  Country: None (occurrence: None)
  Receive Date: 20100730
  Receipt Date: 20100721
  Transmission Date: 20110219
  Serious: Yes (Death, Life-Threatening, Hospitalization, Other)
  Sender: FDA-Public Use
  Company Number: 2009AC000012

PATIENT
  Age: 65 Year
  Sex: Female
  Weight: 96.6162 kg

DRUGS (7)
  1. DIGOXIN [Suspect]
     Dosage: 0.25 MG; QD; PO
     Route: 048
     Dates: start: 20070401
  2. DIGOXIN [Suspect]
     Indication: ATRIAL FIBRILLATION
     Dosage: 0.250 MG; PO
     Route: 048
     Dates: start: 19980122
  3. DIGOXIN [Suspect]
     Indication: ATRIAL FIBRILLATION
     Dosage: 0.125 MG; QD; PO
     Route: 048
     Dates: end: 20070601
  4. MAXZIDE [Concomitant]
  5. AMARYL [Concomitant]
  6. GLUCOPHAGE [Concomitant]
  7. ARIMIDEX [Concomitant]

REACTIONS (31)
  - ANXIETY [None]
  - BLOOD CHOLESTEROL INCREASED [None]
  - BLOOD GLUCOSE INCREASED [None]
  - BLOOD TRIGLYCERIDES INCREASED [None]
  - CARDIAC FAILURE CONGESTIVE [None]
  - CARDIOACTIVE DRUG LEVEL DECREASED [None]
  - CAROTID ARTERY STENOSIS [None]
  - CELLULITIS [None]
  - CEREBRAL ISCHAEMIA [None]
  - DECUBITUS ULCER [None]
  - DIABETES MELLITUS [None]
  - DYSPNOEA [None]
  - ECONOMIC PROBLEM [None]
  - ELECTROCARDIOGRAM ST-T CHANGE [None]
  - GLYCOSYLATED HAEMOGLOBIN INCREASED [None]
  - HYPERTENSION [None]
  - HYPOAESTHESIA [None]
  - HYPOXIA [None]
  - INJURY [None]
  - LONG QT SYNDROME [None]
  - MEMORY IMPAIRMENT [None]
  - MENTAL DISORDER [None]
  - MYOCARDIAL INFARCTION [None]
  - OEDEMA PERIPHERAL [None]
  - PHLEBITIS SUPERFICIAL [None]
  - PNEUMONIA [None]
  - PULSE PRESSURE DECREASED [None]
  - ROAD TRAFFIC ACCIDENT [None]
  - SINUSITIS [None]
  - VENTRICULAR EXTRASYSTOLES [None]
  - VISUAL IMPAIRMENT [None]
